FAERS Safety Report 23860742 (Version 1)
Quarter: 2024Q2

REPORT INFORMATION
  Report Type: Other
  Country: US (occurrence: None)
  Receive Date: 20240516
  Receipt Date: 20240516
  Transmission Date: 20240716
  Serious: Yes (Hospitalization)
  Sender: FDA-Public Use
  Company Number: US-ROCHE-3557237

PATIENT
  Age: 53 Year
  Sex: Female
  Weight: 79.45 kg

DRUGS (12)
  1. OCREVUS [Suspect]
     Active Substance: OCRELIZUMAB
     Indication: Relapsing-remitting multiple sclerosis
     Dosage: LAST DOSE 02/APR/2024.
     Route: 042
  2. COPAXONE [Concomitant]
     Active Substance: GLATIRAMER ACETATE
  3. AUBAGIO [Concomitant]
     Active Substance: TERIFLUNOMIDE
  4. TECFIDERA [Concomitant]
     Active Substance: DIMETHYL FUMARATE
  5. AVONEX [Concomitant]
     Active Substance: INTERFERON BETA-1A
  6. VITAMIN D3 [Concomitant]
     Active Substance: CHOLECALCIFEROL
  7. CYANOCOBALAMIN [Concomitant]
     Active Substance: CYANOCOBALAMIN
  8. DULOXETINE [Concomitant]
     Active Substance: DULOXETINE
  9. GABAPENTIN [Concomitant]
     Active Substance: GABAPENTIN
  10. LORAZEPAM [Concomitant]
     Active Substance: LORAZEPAM
  11. MORPHINE [Concomitant]
     Active Substance: MORPHINE
  12. SPIRONOLACTONE [Concomitant]
     Active Substance: SPIRONOLACTONE

REACTIONS (28)
  - Tinnitus [Recovered/Resolved]
  - Tremor [Recovered/Resolved]
  - Fall [Unknown]
  - Muscular weakness [Recovered/Resolved]
  - Hypotension [Not Recovered/Not Resolved]
  - Heart rate increased [Not Recovered/Not Resolved]
  - Renal disorder [Recovered/Resolved]
  - Swelling [Unknown]
  - Inflammation [Unknown]
  - Colitis [Unknown]
  - Oral pain [Not Recovered/Not Resolved]
  - Pharyngeal ulceration [Not Recovered/Not Resolved]
  - Oral discomfort [Not Recovered/Not Resolved]
  - Dyspepsia [Not Recovered/Not Resolved]
  - Oral mucosal blistering [Not Recovered/Not Resolved]
  - Tongue blistering [Not Recovered/Not Resolved]
  - Gingival pain [Not Recovered/Not Resolved]
  - Oral herpes [Not Recovered/Not Resolved]
  - Abdominal pain upper [Not Recovered/Not Resolved]
  - Fatigue [Not Recovered/Not Resolved]
  - Haematochezia [Not Recovered/Not Resolved]
  - Brain fog [Not Recovered/Not Resolved]
  - Asthenia [Not Recovered/Not Resolved]
  - General physical health deterioration [Not Recovered/Not Resolved]
  - Throat irritation [Not Recovered/Not Resolved]
  - Tongue discomfort [Not Recovered/Not Resolved]
  - Oropharyngeal blistering [Not Recovered/Not Resolved]
  - Lip blister [Not Recovered/Not Resolved]

NARRATIVE: CASE EVENT DATE: 20240403
